FAERS Safety Report 20903742 (Version 1)
Quarter: 2022Q2

REPORT INFORMATION
  Report Type: Report from Study
  Country: US (occurrence: US)
  Receive Date: 20220602
  Receipt Date: 20220602
  Transmission Date: 20220720
  Serious: Yes (Other)
  Sender: FDA-Public Use
  Company Number: US-GILEAD-2022-0583210

PATIENT
  Sex: Male

DRUGS (14)
  1. AZTREONAM LYSINE [Suspect]
     Active Substance: AZTREONAM LYSINE
     Indication: Product used for unknown indication
     Dosage: 75 MG, TID, 28/28
     Route: 055
  2. PLAVIX [Concomitant]
     Active Substance: CLOPIDOGREL BISULFATE
  3. LIPITOR [Concomitant]
     Active Substance: ATORVASTATIN CALCIUM
  4. BUDESONIDE [Concomitant]
     Active Substance: BUDESONIDE
  5. ABREVA [Concomitant]
     Active Substance: DOCOSANOL
  6. HYDROCHLOROTHIAZIDE\LISINOPRIL [Concomitant]
     Active Substance: HYDROCHLOROTHIAZIDE\LISINOPRIL
  7. ALBUTEROL [Concomitant]
     Active Substance: ALBUTEROL
  8. ALLOPURINOL [Concomitant]
     Active Substance: ALLOPURINOL
  9. OMEPRAZOLE SODIUM [Concomitant]
     Active Substance: OMEPRAZOLE SODIUM
  10. LASIX [Concomitant]
     Active Substance: FUROSEMIDE
  11. TYLENOL [Concomitant]
     Active Substance: ACETAMINOPHEN
  12. VITAMINS [Concomitant]
     Active Substance: VITAMINS
  13. POTASSIUM [Concomitant]
     Active Substance: POTASSIUM
  14. SODIUM CHLORIDE [Concomitant]
     Active Substance: SODIUM CHLORIDE

REACTIONS (1)
  - Cystic fibrosis [Not Recovered/Not Resolved]
